FAERS Safety Report 16937719 (Version 1)
Quarter: 2019Q4

REPORT INFORMATION
  Report Type: Spontaneous
  Country: US (occurrence: US)
  Receive Date: 20191019
  Receipt Date: 20191019
  Transmission Date: 20200122
  Serious: Yes (Life-Threatening, Hospitalization, Other)
  Sender: FDA-Public Use
  Company Number: US-TAKEDA-2019TUS058238

PATIENT
  Age: 58 Year
  Sex: Male
  Weight: 72.11 kg

DRUGS (2)
  1. VELCADE [Suspect]
     Active Substance: BORTEZOMIB
     Indication: PRODUCT USED FOR UNKNOWN INDICATION
     Dosage: 2.425 MILLIGRAM
     Route: 042
     Dates: start: 20190722, end: 20190725
  2. MELPHALAN. [Suspect]
     Active Substance: MELPHALAN
     Indication: PRODUCT USED FOR UNKNOWN INDICATION
     Dosage: 56.25 MILLIGRAM
     Route: 042
     Dates: start: 20190722, end: 20190722

REACTIONS (2)
  - Sepsis [Recovered/Resolved]
  - Staphylococcal bacteraemia [Recovered/Resolved]

NARRATIVE: CASE EVENT DATE: 20190806
